FAERS Safety Report 7961876-4 (Version None)
Quarter: 2011Q4

REPORT INFORMATION
  Report Type: 
  Country: None (occurrence: None)
  Receive Date: 20111207
  Receipt Date: 20111127
  Transmission Date: 20120403
  Serious: Yes (Other)
  Sender: FDA-Public Use
  Company Number: DE-JNJFOC-20111108547

PATIENT
  Sex: Female
  Weight: 71 kg

DRUGS (8)
  1. ANTIDIABETES MEDICATION [Concomitant]
     Indication: DIABETES MELLITUS
  2. ZOLPIDEM TARTRATE [Concomitant]
  3. METOPROLOL SUCCINATE [Concomitant]
  4. ENOXAPARIN SODIUM [Concomitant]
  5. DIOVAN [Concomitant]
  6. XARELTO [Suspect]
     Indication: ORTHOPEDIC PROCEDURE
     Route: 065
  7. SIMVASTATIN [Concomitant]
     Dates: end: 20110501
  8. FRAGMIN [Concomitant]

REACTIONS (1)
  - DEEP VEIN THROMBOSIS [None]
